FAERS Safety Report 4499513-6 (Version None)
Quarter: 2004Q4

REPORT INFORMATION
  Report Type: 
  Country: None (occurrence: None)
  Receive Date: 20040928
  Receipt Date: 20040609
  Transmission Date: 20050328
  Serious: No
  Sender: FDA-Public Use
  Company Number: 04P-163-0246435-00

PATIENT
  Age: 77 Year
  Sex: Female
  Weight: 49.8957 kg

DRUGS (9)
  1. HUMIRA [Suspect]
     Indication: RHEUMATOID ARTHRITIS
     Dosage: 40 MG, 1 IN 2 WK, SUBCUTANEOUS
     Route: 058
     Dates: start: 20031030
  2. LISINOPRIL [Concomitant]
  3. AMLODIPINE BESYLATE [Concomitant]
  4. METOPROLOL SUCCINATE [Concomitant]
  5. COUMADIN [Concomitant]
  6. FUROSEMIDE [Concomitant]
  7. COSOPT [Concomitant]
  8. RIMEXOLONE [Concomitant]
  9. PIPEMIDIC ACID [Concomitant]

REACTIONS (3)
  - CONDITION AGGRAVATED [None]
  - SINUS DISORDER [None]
  - VISION BLURRED [None]
